FAERS Safety Report 7098808-X (Version None)
Quarter: 2010Q4

REPORT INFORMATION
  Report Type: 
  Country: None (occurrence: None)
  Receive Date: 20101110
  Receipt Date: 20101110
  Transmission Date: 20110411
  Serious: Yes (Death)
  Sender: FDA-Public Use
  Company Number: None

PATIENT
  Age: 62 Year
  Sex: Female

DRUGS (11)
  1. REVLIMID [Suspect]
     Indication: MULTIPLE MYELOMA
     Dosage: 25MG DAILY X21D/28D DAILY ORALLY
     Route: 048
     Dates: start: 20100127, end: 20100629
  2. AREDIA [Concomitant]
  3. DECADRON [Concomitant]
  4. ASPIRIN [Concomitant]
  5. ALBUTEROL [Concomitant]
  6. VERAPAMIL [Concomitant]
  7. LASIX [Concomitant]
  8. HYDRALAZINE [Concomitant]
  9. POTASSIUM CHLORIDE [Concomitant]
  10. CALCIUM [Concomitant]
  11. COLACE [Concomitant]

REACTIONS (5)
  - CARDIAC ARREST [None]
  - FEBRILE NEUTROPENIA [None]
  - HYPOTENSION [None]
  - LACTIC ACIDOSIS [None]
  - RESPIRATORY FAILURE [None]
